FAERS Safety Report 6126983-X (Version None)
Quarter: 2009Q1

REPORT INFORMATION
  Report Type: 
  Country: None (occurrence: None)
  Receive Date: 20090320
  Receipt Date: 20090318
  Transmission Date: 20090719
  Serious: Yes (Hospitalization, Other)
  Sender: FDA-Public Use
  Company Number: GB-MERCK-0902GBR00070

PATIENT

DRUGS (4)
  1. ZOCOR [Suspect]
     Route: 048
  2. DICLOFENAC [Suspect]
     Route: 065
  3. PREDNISOLONE [Suspect]
     Route: 065
  4. WARFARIN [Suspect]
     Route: 065

REACTIONS (3)
  - CONTUSION [None]
  - FALL [None]
  - INTERNATIONAL NORMALISED RATIO INCREASED [None]
